FAERS Safety Report 24223326 (Version 1)
Quarter: 2024Q3

REPORT INFORMATION
  Report Type: Spontaneous
  Country: US (occurrence: US)
  Receive Date: 20240819
  Receipt Date: 20240819
  Transmission Date: 20241017
  Serious: No
  Sender: ANI
  Company Number: US-ANIPHARMA-2024-US-040099

PATIENT
  Sex: Female
  Weight: 82.1 kg

DRUGS (9)
  1. ANASTROZOLE [Suspect]
     Active Substance: ANASTROZOLE
     Indication: Product used for unknown indication
  2. SIMETHECONE [Concomitant]
  3. IBRANCE [Suspect]
     Active Substance: PALBOCICLIB
     Dosage: 75 MG BY MOUTH EVERY OTHER DAY FOR 2 WEEKS ON, 2 WEEKS OFF
     Dates: start: 20240129
  4. LOW DOSE ASPIRIN [Concomitant]
     Active Substance: ASPIRIN
  5. BACLOFEN [Concomitant]
     Active Substance: BACLOFEN
  6. CALCIUM+ VITAMIN D3 [Concomitant]
  7. CANDESARTAN [Concomitant]
     Active Substance: CANDESARTAN
  8. CRANBERRY CAP [Concomitant]
  9. VIT B-12 [Concomitant]

REACTIONS (1)
  - Hot flush [Not Recovered/Not Resolved]
